FAERS Safety Report 10621543 (Version 3)
Quarter: 2014Q4

REPORT INFORMATION
  Report Type: Spontaneous
  Country: US (occurrence: None)
  Receive Date: 20141128
  Receipt Date: 20141229
  Transmission Date: 20150529
  Serious: Yes (Other)
  Sender: FDA-Public Use
  Company Number: 2014-US-015366

PATIENT
  Age: 35 Year
  Sex: Female
  Weight: 81.6 kg

DRUGS (10)
  1. ADDERALL [Concomitant]
     Active Substance: AMPHETAMINE ASPARTATE\AMPHETAMINE SULFATE\DEXTROAMPHETAMINE SACCHARATE\DEXTROAMPHETAMINE SULFATE
  2. TRAZODONE [Concomitant]
     Active Substance: TRAZODONE HYDROCHLORIDE
  3. XYREM [Suspect]
     Active Substance: SODIUM OXYBATE
     Indication: NARCOLEPSY
     Route: 048
     Dates: start: 20141115, end: 2014
  4. ROPINIROLE (ROPINIROLE) [Concomitant]
     Active Substance: ROPINIROLE
  5. BACLOFEN (BACLOFEN) [Concomitant]
     Active Substance: BACLOFEN
  6. XYREM [Suspect]
     Active Substance: SODIUM OXYBATE
     Indication: CATAPLEXY
     Route: 048
     Dates: start: 20141115, end: 2014
  7. DEXTROAMPHETAMINE ER (DEXAMFETAMINE SULFATE) [Concomitant]
  8. DEXTROAMPHETAMINE IR (DEXAMFETAMINE SULFATE) [Concomitant]
  9. PANTOPRAZOLE (PANTOPRAZOLE SODIUM SESQUIHYDRATE) [Concomitant]
  10. PROZAC [Concomitant]
     Active Substance: FLUOXETINE HYDROCHLORIDE

REACTIONS (9)
  - Feeling abnormal [None]
  - Insomnia [None]
  - Cataplexy [None]
  - Intentional product misuse [None]
  - Brain neoplasm [None]
  - Tremor [None]
  - Asthenia [None]
  - Thinking abnormal [None]
  - Fatigue [None]

NARRATIVE: CASE EVENT DATE: 2014
